FAERS Safety Report 18554450 (Version 1)
Quarter: 2020Q4

REPORT INFORMATION
  Report Type: Spontaneous
  Country: US (occurrence: US)
  Receive Date: 20201127
  Receipt Date: 20201127
  Transmission Date: 20210114
  Serious: Yes (Hospitalization, Other)
  Sender: FDA-Public Use
  Company Number: US-009507513-2011USA010647

PATIENT
  Age: 65 Year
  Sex: Male
  Weight: 112 kg

DRUGS (13)
  1. CODEINE [Suspect]
     Active Substance: CODEINE
     Route: 065
  2. ASPIRIN. [Concomitant]
     Active Substance: ASPIRIN
     Dates: start: 20020130
  3. ATENOLOL. [Concomitant]
     Active Substance: ATENOLOL
     Dates: start: 20020201
  4. COUMADIN [Concomitant]
     Active Substance: WARFARIN SODIUM
     Dosage: UNK
     Dates: start: 200006, end: 2006
  5. LASIX [Concomitant]
     Active Substance: FUROSEMIDE
  6. PAXIL [Concomitant]
     Active Substance: PAROXETINE HYDROCHLORIDE
  7. WARFARIN [Concomitant]
     Active Substance: WARFARIN
  8. VIOXX [Suspect]
     Active Substance: ROFECOXIB
     Indication: PAIN
  9. INSULINE NPH [Concomitant]
     Active Substance: INSULIN PORK\INSULIN PURIFIED PORK
     Dates: start: 20020131
  10. PRINIVIL [Suspect]
     Active Substance: LISINOPRIL
     Indication: PAIN
     Route: 048
  11. LOVENOX [Concomitant]
     Active Substance: ENOXAPARIN SODIUM
     Dates: start: 20020131
  12. VIOXX [Suspect]
     Active Substance: ROFECOXIB
     Indication: ARTHRITIS
     Dosage: INCREASED TO 50MG/BID THEN FURTHER TO 50MG/DAILY
     Route: 048
     Dates: start: 1999, end: 2003
  13. GLUCOPHAGE [Suspect]
     Active Substance: METFORMIN HYDROCHLORIDE
     Indication: DIABETES MELLITUS
     Dosage: UNK
     Route: 065
     Dates: start: 2002

REACTIONS (31)
  - Gastrointestinal disorder [Unknown]
  - Abdominal discomfort [Unknown]
  - Cardiac failure congestive [Unknown]
  - Cardiovascular disorder [Unknown]
  - Pericardial effusion [Unknown]
  - Urinary incontinence [Unknown]
  - Chest discomfort [Unknown]
  - Overdose [Unknown]
  - Diarrhoea [Unknown]
  - Headache [Unknown]
  - Coronary artery disease [Unknown]
  - Dizziness [Unknown]
  - Dyspepsia [Unknown]
  - Ischaemic stroke [Unknown]
  - Myocardial infarction [Unknown]
  - Urticaria [Unknown]
  - Arthropathy [Unknown]
  - Depression [Unknown]
  - Urinary retention [Unknown]
  - Hypertension [Unknown]
  - Rhinorrhoea [Unknown]
  - High density lipoprotein decreased [Unknown]
  - Psoriatic arthropathy [Unknown]
  - Snoring [Unknown]
  - Cerebrovascular accident [Unknown]
  - Cough [Unknown]
  - Diabetes mellitus [Unknown]
  - Drug hypersensitivity [Unknown]
  - Embolic stroke [Unknown]
  - Fatigue [Unknown]
  - Sudden cardiac death [Unknown]

NARRATIVE: CASE EVENT DATE: 20000604
